FAERS Safety Report 5884374-0 (Version None)
Quarter: 2008Q3

REPORT INFORMATION
  Report Type: 
  Country: None (occurrence: None)
  Receive Date: 20080915
  Receipt Date: 20080903
  Transmission Date: 20090109
  Serious: Yes (Death, Hospitalization, Other)
  Sender: FDA-Public Use
  Company Number: AU-PFIZER INC-2008062297

PATIENT
  Sex: Female
  Weight: 70 kg

DRUGS (5)
  1. CHANTIX [Suspect]
     Route: 048
     Dates: start: 20080529, end: 20080530
  2. MS CONTIN [Concomitant]
     Route: 048
  3. ORDINE [Concomitant]
     Route: 048
  4. ACETYLSALICYLIC ACID SRT [Concomitant]
     Route: 048
  5. VENTOLIN [Concomitant]

REACTIONS (4)
  - CARDIAC FAILURE [None]
  - PURPURA [None]
  - SEPSIS [None]
  - THROMBOCYTOPENIA [None]
